FAERS Safety Report 11079973 (Version 5)
Quarter: 2015Q4

REPORT INFORMATION
  Report Type: Report from Study
  Country: US (occurrence: US)
  Receive Date: 20150430
  Receipt Date: 20151008
  Transmission Date: 20160304
  Serious: Yes (Death, Other)
  Sender: FDA-Public Use
  Company Number: PHEH2015US008011

PATIENT
  Sex: Female

DRUGS (1)
  1. AFINITOR [Suspect]
     Active Substance: EVEROLIMUS
     Indication: BREAST CANCER METASTATIC
     Route: 065

REACTIONS (6)
  - Breast cancer metastatic [Fatal]
  - Metastases to liver [Unknown]
  - Central nervous system lesion [Fatal]
  - Metastases to central nervous system [Fatal]
  - Metastases to lung [Unknown]
  - Metastases to bone [Unknown]
